FAERS Safety Report 6037578-0 (Version None)
Quarter: 2009Q1

REPORT INFORMATION
  Report Type: 
  Country: None (occurrence: None)
  Receive Date: 20090114
  Receipt Date: 20090106
  Transmission Date: 20090719
  Serious: Yes (Hospitalization)
  Sender: FDA-Public Use
  Company Number: DE-ELI_LILLY_AND_COMPANY-DE200811004403

PATIENT
  Age: 34 Year
  Sex: Female

DRUGS (9)
  1. ZYPREXA [Suspect]
     Indication: SCHIZOPHRENIA, PARANOID TYPE
     Dosage: 5 MG, DAILY (1/D)
     Route: 048
     Dates: start: 20071014, end: 20071014
  2. ZYPREXA [Suspect]
     Dosage: 15 MG, DAILY (1/D)
     Route: 048
     Dates: start: 20071015, end: 20071016
  3. ZYPREXA [Suspect]
     Dosage: 20 MG, DAILY (1/D)
     Route: 048
     Dates: start: 20071017, end: 20071017
  4. ZYPREXA [Suspect]
     Dosage: 15 MG, DAILY (1/D)
     Route: 048
     Dates: start: 20071018, end: 20071019
  5. ZYPREXA [Suspect]
     Dosage: 10 MG, DAILY (1/D)
     Route: 048
     Dates: start: 20071020, end: 20071025
  6. PANTOZOL [Concomitant]
     Indication: GASTROINTESTINAL DISORDER
     Dosage: 40 MG, DAILY (1/D)
     Route: 048
     Dates: start: 20071014, end: 20071025
  7. METRONIDAZOLE HCL [Concomitant]
     Indication: ANTIBIOTIC PROPHYLAXIS
     Dosage: 1500 MG, DAILY (1/D)
     Route: 048
     Dates: start: 20071014, end: 20071016
  8. ROCEPHIN [Concomitant]
     Indication: ANTIBIOTIC PROPHYLAXIS
     Dosage: 200 MG, DAILY (1/D)
     Route: 048
     Dates: start: 20071014, end: 20071017
  9. CIPROFLOXACIN HCL [Concomitant]
     Indication: ANTIBIOTIC PROPHYLAXIS
     Dosage: 750 MG, DAILY (1/D)
     Route: 048
     Dates: start: 20071017, end: 20071023

REACTIONS (1)
  - NEUTROPENIA [None]
